FAERS Safety Report 5290510-X (Version None)
Quarter: 2007Q2

REPORT INFORMATION
  Report Type: 
  Country: None (occurrence: None)
  Receive Date: 20070405
  Receipt Date: 20070405
  Transmission Date: 20071010
  Serious: Yes (Death)
  Sender: FDA-Public Use
  Company Number: None

PATIENT
  Age: 26 Year
  Sex: Male
  Weight: 100 kg

DRUGS (1)
  1. WINRHO [Suspect]
     Indication: IDIOPATHIC THROMBOCYTOPENIC PURPURA
     Dosage: 75MCG/KG   X1  IV
     Route: 042
     Dates: start: 20070307, end: 20070307

REACTIONS (9)
  - BACK PAIN [None]
  - BLOOD PRESSURE DECREASED [None]
  - CHILLS [None]
  - DELIRIUM [None]
  - DISSEMINATED INTRAVASCULAR COAGULATION [None]
  - ELECTROMECHANICAL DISSOCIATION [None]
  - INTRAVASCULAR HAEMOLYSIS [None]
  - PYREXIA [None]
  - TREMOR [None]
